FAERS Safety Report 24383774 (Version 2)
Quarter: 2025Q3

REPORT INFORMATION
  Report Type: Report from Study
  Country: US (occurrence: US)
  Receive Date: 20241001
  Receipt Date: 20250809
  Transmission Date: 20251021
  Serious: Yes (Other)
  Sender: ALEXION PHARMACEUTICALS
  Company Number: US-AstraZeneca-CH-00708298A

PATIENT
  Sex: Female

DRUGS (1)
  1. SOLIRIS [Suspect]
     Active Substance: ECULIZUMAB
     Indication: Product used for unknown indication
     Route: 065

REACTIONS (6)
  - Blindness [Unknown]
  - Renal impairment [Unknown]
  - COVID-19 [Recovered/Resolved]
  - Renal disorder [Unknown]
  - Panic disorder [Unknown]
  - Eye disorder [Unknown]
